FAERS Safety Report 24031832 (Version 1)
Quarter: 2024Q2

REPORT INFORMATION
  Report Type: Spontaneous
  Country: IN (occurrence: IN)
  Receive Date: 20240629
  Receipt Date: 20240629
  Transmission Date: 20240717
  Serious: Yes (Hospitalization)
  Sender: FDA-Public Use
  Company Number: IN-HETERO-HET2024IN01994

PATIENT
  Age: 44 Year
  Sex: Male

DRUGS (3)
  1. PREGABALIN [Suspect]
     Active Substance: PREGABALIN
     Indication: Fibromyalgia
     Dosage: UNK
     Route: 065
  2. ESCITALOPRAM [Suspect]
     Active Substance: ESCITALOPRAM OXALATE
     Indication: Fibromyalgia
     Dosage: UNK
     Route: 065
  3. TRAMADOL [Suspect]
     Active Substance: TRAMADOL\TRAMADOL HYDROCHLORIDE
     Indication: Fibromyalgia
     Dosage: UNK
     Route: 065

REACTIONS (2)
  - Serotonin syndrome [Not Recovered/Not Resolved]
  - Product use in unapproved indication [Unknown]
